FAERS Safety Report 4727580-0 (Version None)
Quarter: 2005Q3

REPORT INFORMATION
  Report Type: 
  Country: None (occurrence: None)
  Receive Date: 20050727
  Receipt Date: 20050727
  Transmission Date: 20060218
  Serious: Yes (Hospitalization)
  Sender: FDA-Public Use
  Company Number: None

PATIENT
  Age: 60 Year
  Sex: Female

DRUGS (9)
  1. FLUOXETINE [Suspect]
     Indication: DEPRESSION
     Dosage: 20MG   PO   QD
     Route: 048
     Dates: start: 20041223, end: 20050504
  2. FUROSEMIDE [Suspect]
     Indication: HYPERTENSION
     Dosage: 20MG  PO    QD
     Route: 048
     Dates: start: 20040716, end: 20050504
  3. HYDRALAZINE [Concomitant]
  4. FLUOXETINE [Concomitant]
  5. SIMVASTATIN [Concomitant]
  6. LASIX [Concomitant]
  7. TYLENOL (CAPLET) [Concomitant]
  8. COUMADIN [Concomitant]
  9. LISINOPRIL [Concomitant]

REACTIONS (1)
  - BLOOD SODIUM DECREASED [None]
